FAERS Safety Report 5498128-0 (Version None)
Quarter: 2007Q4

REPORT INFORMATION
  Report Type: 
  Country: None (occurrence: None)
  Receive Date: 20071025
  Receipt Date: 20071008
  Transmission Date: 20080405
  Serious: No
  Sender: FDA-Public Use
  Company Number: US-BOEHRINGER INGELHEIM PHARMACEUTICALS, INC.-2007-BP-22355BP

PATIENT
  Age: 68 Year
  Sex: Male

DRUGS (2)
  1. FLOMAX [Suspect]
     Indication: BENIGN PROSTATIC HYPERPLASIA
     Route: 048
     Dates: start: 20070401
  2. SAW PALMETTO [Concomitant]
     Indication: BENIGN PROSTATIC HYPERPLASIA
     Dates: start: 19970101

REACTIONS (1)
  - PRURITUS [None]
